FAERS Safety Report 13400558 (Version 1)
Quarter: 2017Q2

REPORT INFORMATION
  Report Type: Spontaneous
  Country: US (occurrence: US)
  Receive Date: 20170404
  Receipt Date: 20170404
  Transmission Date: 20170830
  Serious: No
  Sender: FDA-Public Use
  Company Number: US-JNJFOC-20170310535

PATIENT
  Age: 71 Year
  Sex: Male
  Weight: 68.04 kg

DRUGS (2)
  1. NIZORAL A-D [Suspect]
     Active Substance: KETOCONAZOLE
     Indication: PRURITUS
     Dosage: DOSAGE: LESS THAN QUARTER SIZE??INTERVAL: ONCE OR TWICE A WEEK
     Route: 061
     Dates: start: 201612
  2. NIZORAL A-D [Suspect]
     Active Substance: KETOCONAZOLE
     Indication: DANDRUFF
     Dosage: DOSAGE: LESS THAN QUARTER SIZE??INTERVAL: ONCE OR TWICE A WEEK
     Route: 061
     Dates: start: 201612

REACTIONS (1)
  - Expired product administered [Unknown]
